FAERS Safety Report 10445706 (Version 1)
Quarter: 2014Q3

REPORT INFORMATION
  Report Type: Other
  Country: PT (occurrence: PT)
  Receive Date: 20140910
  Receipt Date: 20140910
  Transmission Date: 20150326
  Serious: Yes (Hospitalization)
  Sender: FDA-Public Use
  Company Number: PT-US-EMD SERONO, INC.-7319422

PATIENT
  Age: 40 Year
  Sex: Female

DRUGS (2)
  1. FOLLITROPIN ALFA [Suspect]
     Active Substance: FOLLITROPIN
     Indication: IN VITRO FERTILISATION
     Dates: start: 2011
  2. MENOPUR [Suspect]
     Active Substance: FOLLICLE STIMULATING HORMONE BETA POLYPEPTIDE\LUTROPIN ALFA
     Indication: IN VITRO FERTILISATION
     Dates: start: 201105

REACTIONS (11)
  - Psychomotor hyperactivity [Recovered/Resolved]
  - Asthenia [Recovered/Resolved]
  - Anaemia [Recovered/Resolved]
  - Delusion [Recovered/Resolved]
  - Feeling abnormal [Recovered/Resolved]
  - Fatigue [Recovered/Resolved]
  - Decreased activity [Recovered/Resolved]
  - Menorrhagia [Recovered/Resolved]
  - Uterine disorder [Recovered/Resolved]
  - Hallucination, auditory [Recovered/Resolved]
  - Headache [Recovered/Resolved]

NARRATIVE: CASE EVENT DATE: 201105
